FAERS Safety Report 8783762 (Version 1)
Quarter: 2012Q4

REPORT INFORMATION
  Report Type: Spontaneous
  Country: US (occurrence: None)
  Receive Date: 20120906
  Receipt Date: 20120906
  Transmission Date: 20130627
  Serious: No
  Sender: FDA-Public Use
  Company Number: None

PATIENT
  Age: 66 Year
  Sex: Female

DRUGS (1)
  1. XELODA [Suspect]
     Indication: MALIGNANT BREAST NEOPLASM
     Dosage: 4 tab bid 14 days on 7
     Route: 048
     Dates: start: 20120419, end: 20120812

REACTIONS (5)
  - Stomatitis [None]
  - Neuropathy peripheral [None]
  - Rash [None]
  - Skin exfoliation [None]
  - Skin disorder [None]
